FAERS Safety Report 23024419 (Version 2)
Quarter: 2023Q4

REPORT INFORMATION
  Report Type: Spontaneous
  Country: US (occurrence: US)
  Receive Date: 20231004
  Receipt Date: 20231110
  Transmission Date: 20240110
  Serious: Yes (Other)
  Sender: FDA-Public Use
  Company Number: US-AUROBINDO-AUR-APL-2023-061461

PATIENT
  Age: 35 Year
  Sex: Male
  Weight: 160 kg

DRUGS (1)
  1. FENOFIBRATE [Suspect]
     Active Substance: FENOFIBRATE
     Indication: Drug therapy
     Dosage: UNK UNK, ONCE A DAY, (01 WEEK AGO)
     Route: 065
     Dates: end: 20230919

REACTIONS (7)
  - Haematochezia [Recovered/Resolved]
  - Syncope [Recovered/Resolved]
  - Constipation [Recovered/Resolved]
  - Dizziness [Recovered/Resolved]
  - Dehydration [Recovered/Resolved]
  - General physical health deterioration [Recovered/Resolved]
  - Tremor [Recovered/Resolved]
